FAERS Safety Report 5640386-3 (Version None)
Quarter: 2008Q1

REPORT INFORMATION
  Report Type: 
  Country: None (occurrence: None)
  Receive Date: 20080227
  Receipt Date: 20080121
  Transmission Date: 20080703
  Serious: No
  Sender: FDA-Public Use
  Company Number: US-BAXTER-2008BH000321

PATIENT
  Age: 50 Year
  Sex: Male
  Weight: 110 kg

DRUGS (2)
  1. HEPARIN SODIUM [Suspect]
     Indication: HAEMODIALYSIS
     Route: 010
     Dates: start: 20071229, end: 20071229
  2. HEPARIN SODIUM [Suspect]
     Route: 010
     Dates: start: 20080108, end: 20080108

REACTIONS (6)
  - CHEST DISCOMFORT [None]
  - COLD SWEAT [None]
  - DYSPNOEA [None]
  - NAUSEA [None]
  - OCULAR HYPERAEMIA [None]
  - PHOTOPSIA [None]
